FAERS Safety Report 13559318 (Version 1)
Quarter: 2017Q2

REPORT INFORMATION
  Report Type: Spontaneous
  Country: US (occurrence: US)
  Receive Date: 20170517
  Receipt Date: 20170517
  Transmission Date: 20170830
  Serious: Yes (Hospitalization)
  Sender: FDA-Public Use
  Company Number: None

PATIENT
  Age: 57 Year
  Sex: Male

DRUGS (1)
  1. IOPAMIDOL [Suspect]
     Active Substance: IOPAMIDOL
     Dates: start: 20170422

REACTIONS (3)
  - Chest pain [None]
  - Flushing [None]
  - Blood pressure systolic increased [None]

NARRATIVE: CASE EVENT DATE: 20170415
